FAERS Safety Report 17829664 (Version 1)
Quarter: 2020Q2

REPORT INFORMATION
  Report Type: Spontaneous
  Country: CA (occurrence: CA)
  Receive Date: 20200527
  Receipt Date: 20200527
  Transmission Date: 20200714
  Serious: Yes (Hospitalization)
  Sender: FDA-Public Use
  Company Number: CA-TEVA-2020-CA-1239097

PATIENT
  Age: 80 Year
  Sex: Female

DRUGS (5)
  1. PANTOPRAZOLE [Concomitant]
     Active Substance: PANTOPRAZOLE
  2. ASA [Concomitant]
     Active Substance: ASPIRIN
  3. DOCETAXEL. [Suspect]
     Active Substance: DOCETAXEL
     Indication: BREAST CANCER
     Route: 042
  4. NPH INSULIN [Concomitant]
     Active Substance: INSULIN BEEF
  5. METFORMIN [Concomitant]
     Active Substance: METFORMIN HYDROCHLORIDE

REACTIONS (5)
  - Blood creatinine increased [Recovering/Resolving]
  - Pain in extremity [Recovering/Resolving]
  - Blood creatine phosphokinase increased [Recovering/Resolving]
  - Myositis [Recovering/Resolving]
  - C-reactive protein increased [Recovering/Resolving]
